FAERS Safety Report 5856130-0 (Version None)
Quarter: 2008Q3

REPORT INFORMATION
  Report Type: 
  Country: None (occurrence: None)
  Receive Date: 20080825
  Receipt Date: 20080819
  Transmission Date: 20090109
  Serious: Yes (Hospitalization)
  Sender: FDA-Public Use
  Company Number: UA-WYE-H05634608

PATIENT
  Sex: Female

DRUGS (6)
  1. EFFEXOR XR [Suspect]
     Indication: DEPRESSION
     Route: 048
     Dates: start: 20080429, end: 20080512
  2. EFFEXOR XR [Suspect]
     Dates: start: 20080513
  3. SODIUM BENZOATE [Concomitant]
  4. HALIBORANGE [Concomitant]
     Dosage: UNKNOWN
  5. ESZOPICLONE [Suspect]
     Indication: INSOMNIA
     Dosage: BLINDED THERAPY DAILY
     Route: 048
     Dates: start: 20080429
  6. DICYNONE [Concomitant]
     Dosage: UNKNOWN

REACTIONS (3)
  - ASTHENIA [None]
  - UTERINE HAEMORRHAGE [None]
  - UTERINE PAIN [None]
